FAERS Safety Report 24356942 (Version 1)
Quarter: 2024Q3

REPORT INFORMATION
  Report Type: Spontaneous
  Country: JP (occurrence: JP)
  Receive Date: 20240924
  Receipt Date: 20240924
  Transmission Date: 20241016
  Serious: Yes (Other)
  Sender: AMGEN
  Company Number: JP-AMGEN-JPNSP2024147002

PATIENT
  Age: 78 Year
  Sex: Male

DRUGS (3)
  1. BLINCYTO [Suspect]
     Active Substance: BLINATUMOMAB
     Indication: Acute lymphocytic leukaemia
     Dosage: UNK, INJECTION
     Route: 042
     Dates: start: 20240704
  2. DASATINIB [Concomitant]
     Active Substance: DASATINIB
     Dosage: 50 MILLIGRAM
     Dates: start: 202407
  3. SODIUM CHLORIDE [Concomitant]
     Active Substance: SODIUM CHLORIDE
     Dosage: 20 ML OF 20%
     Dates: start: 202407

REACTIONS (3)
  - Acute lymphocytic leukaemia recurrent [Unknown]
  - Hyponatraemia [Recovered/Resolved]
  - Pyrexia [Not Recovered/Not Resolved]

NARRATIVE: CASE EVENT DATE: 20240724
